FAERS Safety Report 23571319 (Version 1)
Quarter: 2024Q1

REPORT INFORMATION
  Report Type: Spontaneous
  Country: US (occurrence: US)
  Receive Date: 20240227
  Receipt Date: 20240227
  Transmission Date: 20240410
  Serious: No
  Sender: FDA-Public Use
  Company Number: US-SANDOZ-SDZ2024US016976

PATIENT
  Age: 21 Year
  Sex: Female

DRUGS (4)
  1. RITALIN [Suspect]
     Active Substance: METHYLPHENIDATE HYDROCHLORIDE
     Indication: Attention deficit hyperactivity disorder
     Dosage: UNK
     Route: 048
  2. EFFEXOR [Concomitant]
     Active Substance: VENLAFAXINE HYDROCHLORIDE
     Indication: Product used for unknown indication
     Dosage: 50MG IN AM AND 75MG IN PM
     Route: 048
  3. XELSTRYM [Concomitant]
     Active Substance: DEXTROAMPHETAMINE
     Indication: Attention deficit hyperactivity disorder
     Dosage: 4.5 MG
     Route: 062
     Dates: start: 20240104
  4. XELSTRYM [Concomitant]
     Active Substance: DEXTROAMPHETAMINE
     Dosage: 9 MG, QD
     Route: 065
     Dates: start: 20240122

REACTIONS (1)
  - Drug hypersensitivity [Unknown]
